FAERS Safety Report 5328585-1 (Version None)
Quarter: 2007Q2

REPORT INFORMATION
  Report Type: 
  Country: None (occurrence: None)
  Receive Date: 20070518
  Receipt Date: 20070517
  Transmission Date: 20071010
  Serious: Yes (Hospitalization)
  Sender: FDA-Public Use
  Company Number: US-GENENTECH-239239

PATIENT
  Age: 60 Year
  Sex: Male
  Weight: 64.853 kg

DRUGS (2)
  1. AVASTIN [Suspect]
     Indication: RENAL CELL CARCINOMA STAGE UNSPECIFIED
     Dosage: 1500 MG, Q2W
     Route: 042
     Dates: start: 20060712
  2. INTERLEUKIN-2 [Suspect]
     Indication: RENAL CELL CARCINOMA STAGE UNSPECIFIED
     Dosage: 3 MIU, 5/WEEK
     Route: 058
     Dates: start: 20060726

REACTIONS (2)
  - FLANK PAIN [None]
  - HAEMORRHAGE URINARY TRACT [None]
